FAERS Safety Report 5150686-1 (Version None)
Quarter: 2006Q4

REPORT INFORMATION
  Report Type: 
  Country: None (occurrence: None)
  Receive Date: 20061110
  Receipt Date: 20061110
  Transmission Date: 20070319
  Serious: Yes (Other)
  Sender: FDA-Public Use
  Company Number: None

PATIENT
  Age: 18 Year
  Sex: Female
  Weight: 55.7924 kg

DRUGS (1)
  1. EQUATE PAIN RELIEVER    EXTRA STRENGTH     PERRIGO, ALLEGAN, MI 49010 [Suspect]
     Indication: TOOTHACHE
     Dosage: 2    EVERY 4 HOURS  PO
     Route: 048
     Dates: start: 20061001, end: 20061031

REACTIONS (1)
  - HAEMATOCHEZIA [None]
